FAERS Safety Report 7679068-5 (Version None)
Quarter: 2011Q3

REPORT INFORMATION
  Report Type: 
  Country: None (occurrence: None)
  Receive Date: 20110812
  Receipt Date: 20110805
  Transmission Date: 20111222
  Serious: Yes (Hospitalization, Other)
  Sender: FDA-Public Use
  Company Number: US-AMGEN-USASP2011039949

PATIENT
  Age: 53 Year
  Sex: Male

DRUGS (1)
  1. ENBREL [Suspect]
     Indication: RHEUMATOID ARTHRITIS
     Dosage: 50 MG, QWK
     Dates: start: 20100727

REACTIONS (7)
  - DIZZINESS [None]
  - EYE SWELLING [None]
  - VOMITING [None]
  - DIARRHOEA [None]
  - RHEUMATOID ARTHRITIS [None]
  - PULMONARY FIBROSIS [None]
  - DYSPNOEA [None]
